FAERS Safety Report 15732998 (Version 1)
Quarter: 2018Q4

REPORT INFORMATION
  Report Type: Spontaneous
  Country: US (occurrence: US)
  Receive Date: 20181218
  Receipt Date: 20181218
  Transmission Date: 20190205
  Serious: No
  Sender: FDA-Public Use
  Company Number: US-ELI_LILLY_AND_COMPANY-US201812005272

PATIENT
  Sex: Male

DRUGS (1)
  1. HUMALOG [Suspect]
     Active Substance: INSULIN LISPRO
     Indication: PRODUCT USED FOR UNKNOWN INDICATION
     Dosage: UNK UNK, PRN (FIVE TIMES A DAY USING SLIDING SCALE )
     Route: 065

REACTIONS (2)
  - Blood glucose increased [Recovering/Resolving]
  - Underdose [Recovering/Resolving]

NARRATIVE: CASE EVENT DATE: 20181211
